FAERS Safety Report 8308944-5 (Version None)
Quarter: 2012Q2

REPORT INFORMATION
  Report Type: 
  Country: None (occurrence: None)
  Receive Date: 20120424
  Receipt Date: 20120420
  Transmission Date: 20120825
  Serious: Yes (Life-Threatening)
  Sender: FDA-Public Use
  Company Number: JP-CUBIST-2012S1000354

PATIENT
  Age: 60 Year
  Sex: Male
  Weight: 81 kg

DRUGS (11)
  1. VALSARTAN [Concomitant]
     Indication: HYPERTENSION
     Route: 048
  2. ALL OTHER THERAPEUTIC PRODUCTS [Concomitant]
     Indication: DIABETES MELLITUS
     Dosage: DOSE UNIT:1 UNKNOWN
     Route: 048
     Dates: start: 20110826
  3. LANTUS [Concomitant]
     Indication: DIABETES MELLITUS
     Dosage: DOSE UNIT:7 UNKNOWN
     Route: 058
     Dates: start: 20080325
  4. NEXIUM [Concomitant]
     Indication: PRODUCT USED FOR UNKNOWN INDICATION
     Dosage: DOSE UNIT:U UNKNOWN
     Route: 048
  5. CUBICIN [Suspect]
     Route: 042
     Dates: start: 20120312, end: 20120315
  6. CUBICIN [Suspect]
     Indication: DIABETIC FOOT
     Route: 042
     Dates: start: 20120309, end: 20120310
  7. LIVALO [Concomitant]
     Indication: DYSLIPIDAEMIA
     Route: 048
     Dates: start: 20080307
  8. CARVEDILOL [Concomitant]
     Indication: TACHYCARDIA
     Route: 048
     Dates: start: 20100115
  9. APIDRA [Concomitant]
     Indication: DIABETES MELLITUS
     Dosage: DOSE UNIT:3 UNKNOWN
     Route: 058
     Dates: start: 20090828
  10. WARFARIN SODIUM [Concomitant]
     Indication: ATRIAL FIBRILLATION
     Route: 048
     Dates: start: 20110304
  11. ALISKIREN [Concomitant]
     Indication: HYPERTENSION
     Route: 048
     Dates: start: 20101119

REACTIONS (1)
  - CARDIAC FAILURE ACUTE [None]
